FAERS Safety Report 6557888-8 (Version None)
Quarter: 2010Q1

REPORT INFORMATION
  Report Type: 
  Country: None (occurrence: None)
  Receive Date: 20100129
  Receipt Date: 20081222
  Transmission Date: 20100710
  Serious: No
  Sender: FDA-Public Use
  Company Number: US-BAUSCH-2008BL005322

PATIENT
  Age: 76 Year
  Sex: Female
  Weight: 37 kg

DRUGS (3)
  1. METIPRANOLOL 0.3% OPHTHALMIC SOLUTION [Suspect]
     Indication: GLAUCOMA
     Route: 047
     Dates: start: 20081220, end: 20081201
  2. LANOXIN [Concomitant]
     Indication: CARDIAC DISORDER
     Route: 048
  3. FOSAMAX /ITA/ [Concomitant]
     Indication: OSTEOPOROSIS
     Route: 048

REACTIONS (1)
  - VISUAL ACUITY REDUCED [None]
